FAERS Safety Report 7635922-1 (Version None)
Quarter: 2011Q3

REPORT INFORMATION
  Report Type: 
  Country: None (occurrence: None)
  Receive Date: 20110718
  Receipt Date: 20110718
  Transmission Date: 20111222
  Serious: Yes (Hospitalization)
  Sender: FDA-Public Use
  Company Number: 2011-IT-0026

PATIENT
  Sex: Female

DRUGS (1)
  1. FENTANYL CITRATE [Suspect]

REACTIONS (1)
  - PARAPARESIS [None]
